FAERS Safety Report 8462764-X (Version None)
Quarter: 2012Q2

REPORT INFORMATION
  Report Type: 
  Country: None (occurrence: None)
  Receive Date: 20120619
  Receipt Date: 20120619
  Transmission Date: 20120825
  Serious: Yes (Disabling)
  Sender: FDA-Public Use
  Company Number: None

PATIENT

DRUGS (1)
  1. ZICAM NASAL SPRAY [Suspect]
     Indication: NASOPHARYNGITIS
     Dosage: ONE SPRAY ONE TIME NASAL
     Route: 045
     Dates: start: 20081101, end: 20081101

REACTIONS (3)
  - NASAL DISCOMFORT [None]
  - RHINALGIA [None]
  - ANOSMIA [None]
